FAERS Safety Report 8224831-5 (Version None)
Quarter: 2012Q1

REPORT INFORMATION
  Report Type: 
  Country: None (occurrence: None)
  Receive Date: 20120321
  Receipt Date: 20120308
  Transmission Date: 20120608
  Serious: No
  Sender: FDA-Public Use
  Company Number: US-B.I. PHARMACEUTICALS,INC./RIDGEFIELD-2012-BP-04478BP

PATIENT
  Sex: Female

DRUGS (4)
  1. HYDROCHLOROTHIAZIDE [Concomitant]
     Indication: HYPERTENSION
  2. METFORMIN HCL [Concomitant]
     Indication: DIABETES MELLITUS
  3. LISINOPRIL [Concomitant]
     Indication: HYPERTENSION
  4. CATAPRES-TTS-1 [Suspect]
     Indication: HYPERTENSION
     Dosage: 0.3 MG
     Route: 062
     Dates: start: 20080101

REACTIONS (1)
  - HYPERTENSION [None]
